FAERS Safety Report 11282447 (Version 3)
Quarter: 2015Q4

REPORT INFORMATION
  Report Type: Spontaneous
  Country: IT (occurrence: IT)
  Receive Date: 20150720
  Receipt Date: 20151214
  Transmission Date: 20160304
  Serious: Yes (Hospitalization)
  Sender: FDA-Public Use
  Company Number: IT-ROCHE-1608783

PATIENT
  Age: 41 Year
  Sex: Female

DRUGS (2)
  1. VALIUM [Suspect]
     Active Substance: DIAZEPAM
     Indication: PRODUCT USED FOR UNKNOWN INDICATION
     Dosage: 5 MG/ML ORAL DROPS, SOLUTION 20 ML BOTTLE
     Route: 048
     Dates: start: 20150523, end: 20150523
  2. DEPAKIN [Concomitant]
     Active Substance: VALPROATE SODIUM
     Dosage: CHRONO 300 MG BLISTER PACK OF 30 TABLETS
     Route: 048

REACTIONS (2)
  - Somnolence [Recovering/Resolving]
  - Drug abuse [Unknown]

NARRATIVE: CASE EVENT DATE: 20150523
